FAERS Safety Report 5437959-X (Version None)
Quarter: 2007Q3

REPORT INFORMATION
  Report Type: 
  Country: None (occurrence: None)
  Receive Date: 20070831
  Receipt Date: 20070629
  Transmission Date: 20080115
  Serious: No
  Sender: FDA-Public Use
  Company Number: A0660609A

PATIENT
  Age: 59 Year
  Sex: Female

DRUGS (2)
  1. ALLI [Suspect]
     Dates: start: 20070615
  2. HYZAAR [Concomitant]

REACTIONS (1)
  - BLOOD PRESSURE INCREASED [None]
